FAERS Safety Report 20492794 (Version 1)
Quarter: 2022Q1

REPORT INFORMATION
  Report Type: Spontaneous
  Country: US (occurrence: None)
  Receive Date: 20220219
  Receipt Date: 20220219
  Transmission Date: 20220424
  Serious: No
  Sender: FDA-Public Use
  Company Number: 2022A032875

PATIENT
  Sex: Male

DRUGS (1)
  1. SYMBICORT [Suspect]
     Active Substance: BUDESONIDE\FORMOTEROL FUMARATE DIHYDRATE
     Indication: Product used for unknown indication
     Dosage: 160/4.5MCG, UNKNOWN UNKNOWN
     Route: 055

REACTIONS (4)
  - Dysstasia [Unknown]
  - Back pain [Unknown]
  - Cough [Unknown]
  - Product communication issue [Unknown]
